FAERS Safety Report 20776787 (Version 4)
Quarter: 2022Q2

REPORT INFORMATION
  Report Type: Report from Study
  Country: US (occurrence: US)
  Receive Date: 20220502
  Receipt Date: 20220602
  Transmission Date: 20220721
  Serious: Yes (Other)
  Sender: FDA-Public Use
  Company Number: US-PFIZER INC-202200641248

PATIENT
  Age: 78 Year
  Sex: Female

DRUGS (1)
  1. ZOLOFT [Suspect]
     Active Substance: SERTRALINE HYDROCHLORIDE
     Indication: Depression
     Dosage: 100 MG

REACTIONS (4)
  - Cardiac failure [Unknown]
  - Product dose omission issue [Unknown]
  - Withdrawal syndrome [Unknown]
  - Malaise [Unknown]
